FAERS Safety Report 11866148 (Version 3)
Quarter: 2016Q1

REPORT INFORMATION
  Report Type: Report from Study
  Country: US (occurrence: US)
  Receive Date: 20151223
  Receipt Date: 20160315
  Transmission Date: 20160526
  Serious: Yes (Hospitalization)
  Sender: FDA-Public Use
  Company Number: US-EXELIXIS-CABO-15005686

PATIENT
  Age: 60 Year
  Sex: Female

DRUGS (8)
  1. ATENOLOL. [Concomitant]
     Active Substance: ATENOLOL
  2. HYDROCHLOROTHIAZIDE. [Concomitant]
     Active Substance: HYDROCHLOROTHIAZIDE
  3. MELOXICAM. [Concomitant]
     Active Substance: MELOXICAM
  4. COMETRIQ [Suspect]
     Active Substance: CABOZANTINIB S-MALATE
     Indication: THYROID CANCER
     Dosage: 140 MG, QD
     Route: 048
     Dates: start: 20150913, end: 20160208
  5. LOSARTAN. [Concomitant]
     Active Substance: LOSARTAN
  6. LEVOTHYROXINE. [Concomitant]
     Active Substance: LEVOTHYROXINE
  7. IRON [Concomitant]
     Active Substance: IRON
  8. VITAMIN C [Concomitant]
     Active Substance: ASCORBIC ACID

REACTIONS (27)
  - Pruritus [Not Recovered/Not Resolved]
  - Pain in extremity [Unknown]
  - Nausea [Unknown]
  - Mouth swelling [Unknown]
  - Dyspnoea [Unknown]
  - Dry skin [Not Recovered/Not Resolved]
  - Dermatitis acneiform [Recovering/Resolving]
  - Rash [Recovering/Resolving]
  - Neoplasm skin [Unknown]
  - Renal pain [Unknown]
  - Seasonal allergy [Unknown]
  - Sneezing [Unknown]
  - Dry mouth [Unknown]
  - Headache [Unknown]
  - Cough [Not Recovered/Not Resolved]
  - Insomnia [Unknown]
  - Emotional distress [Unknown]
  - Diarrhoea [Unknown]
  - Stomatitis [Unknown]
  - Epistaxis [Recovered/Resolved]
  - Glossodynia [Unknown]
  - Skin exfoliation [Not Recovered/Not Resolved]
  - Blister [Unknown]
  - Skin ulcer [Unknown]
  - Dizziness [Unknown]
  - Hair colour changes [Unknown]
  - Traumatic haematoma [Not Recovered/Not Resolved]

NARRATIVE: CASE EVENT DATE: 2015
